FAERS Safety Report 8543381-X (Version None)
Quarter: 2012Q3

REPORT INFORMATION
  Report Type: 
  Country: None (occurrence: None)
  Receive Date: 20120727
  Receipt Date: 20120718
  Transmission Date: 20120928
  Serious: Yes (Other)
  Sender: FDA-Public Use
  Company Number: PHFR2012GB004190

PATIENT
  Age: 21 Year
  Sex: Female

DRUGS (1)
  1. TOBI [Suspect]
     Indication: CYSTIC FIBROSIS
     Dosage: 112 MG, UNK
     Dates: start: 20120703, end: 20120718

REACTIONS (2)
  - BRONCHOSPASM [None]
  - WHEEZING [None]
